FAERS Safety Report 22114216 (Version 1)
Quarter: 2023Q1

REPORT INFORMATION
  Report Type: Spontaneous
  Country: US (occurrence: US)
  Receive Date: 20230320
  Receipt Date: 20230320
  Transmission Date: 20230418
  Serious: No
  Sender: FDA-Public Use
  Company Number: US-SA-SAC20230315001288

PATIENT
  Age: 44 Year
  Sex: Female

DRUGS (9)
  1. DUPIXENT [Suspect]
     Active Substance: DUPILUMAB
     Indication: Nasal polyps
     Dosage: 1 DF, QOW
     Route: 058
     Dates: start: 20221227
  2. ADVIL [Concomitant]
     Active Substance: IBUPROFEN
     Dosage: UNK
  3. ALBUTEROL [Concomitant]
     Active Substance: ALBUTEROL
     Dosage: UNK
  4. BERBERINE [Concomitant]
     Active Substance: BERBERINE
     Dosage: UNK
  5. BISMUTH [BISMUTH SUBNITRATE] [Concomitant]
     Dosage: UNK
  6. BUDESONIDE [Concomitant]
     Active Substance: BUDESONIDE
     Dosage: UNK
  7. ALPHA LIPOIC ACID [Concomitant]
     Active Substance: .ALPHA.-LIPOIC ACID
     Dosage: UNK
  8. CUMIN [Concomitant]
     Active Substance: CUMIN
     Dosage: UNK
  9. FENNEL [FOENICULUM VULGARE SEED] [Concomitant]
     Dosage: UNK

REACTIONS (2)
  - Injection site inflammation [Unknown]
  - Injection site bruising [Unknown]
